FAERS Safety Report 21970497 (Version 1)
Quarter: 2023Q1

REPORT INFORMATION
  Report Type: Other
  Country: US (occurrence: None)
  Receive Date: 20230209
  Receipt Date: 20230209
  Transmission Date: 20230418
  Serious: Yes (Other)
  Sender: FDA-Public Use
  Company Number: US-ROCHE-3281459

PATIENT
  Age: 58 Year
  Sex: Female

DRUGS (18)
  1. XOLAIR [Suspect]
     Active Substance: OMALIZUMAB
     Indication: Asthma
     Dosage: INJECT 300MG SUBCUTANEOUSLY EVERY 2 WEEK(S)
     Route: 058
  2. XOLAIR [Suspect]
     Active Substance: OMALIZUMAB
  3. XOLAIR [Suspect]
     Active Substance: OMALIZUMAB
  4. XOLAIR [Suspect]
     Active Substance: OMALIZUMAB
     Indication: Pain
  5. XOLAIR [Suspect]
     Active Substance: OMALIZUMAB
  6. XOLAIR [Suspect]
     Active Substance: OMALIZUMAB
  7. XOLAIR [Suspect]
     Active Substance: OMALIZUMAB
     Indication: Bronchitis chronic
  8. XOLAIR [Suspect]
     Active Substance: OMALIZUMAB
  9. XOLAIR [Suspect]
     Active Substance: OMALIZUMAB
  10. XOLAIR [Suspect]
     Active Substance: OMALIZUMAB
     Indication: Lung infiltration
  11. XOLAIR [Suspect]
     Active Substance: OMALIZUMAB
  12. XOLAIR [Suspect]
     Active Substance: OMALIZUMAB
  13. XOLAIR [Suspect]
     Active Substance: OMALIZUMAB
     Indication: Lung disorder
  14. XOLAIR [Suspect]
     Active Substance: OMALIZUMAB
  15. XOLAIR [Suspect]
     Active Substance: OMALIZUMAB
  16. XOLAIR [Suspect]
     Active Substance: OMALIZUMAB
     Indication: Asthma
  17. XOLAIR [Suspect]
     Active Substance: OMALIZUMAB
  18. XOLAIR [Suspect]
     Active Substance: OMALIZUMAB

REACTIONS (2)
  - Lower limb fracture [Unknown]
  - Upper limb fracture [Unknown]
